FAERS Safety Report 15550862 (Version 1)
Quarter: 2018Q4

REPORT INFORMATION
  Report Type: Spontaneous
  Country: US (occurrence: US)
  Receive Date: 20181019
  Receipt Date: 20181019
  Transmission Date: 20190205
  Serious: No
  Sender: FDA-Public Use
  Company Number: None

PATIENT
  Age: 34 Year
  Sex: Female

DRUGS (4)
  1. LYRICA [Concomitant]
     Active Substance: PREGABALIN
     Dates: start: 20181018
  2. PERCOCET [Concomitant]
     Active Substance: ACETAMINOPHEN\OXYCODONE HYDROCHLORIDE
     Dates: start: 20181018
  3. SIMPONI [Suspect]
     Active Substance: GOLIMUMAB
     Dosage: OTHER
     Route: 058
     Dates: start: 201810
  4. LYRICA [Concomitant]
     Active Substance: PREGABALIN
     Dates: start: 20181018

REACTIONS (1)
  - Headache [None]

NARRATIVE: CASE EVENT DATE: 20181018
